FAERS Safety Report 9936855 (Version 1)
Quarter: 2014Q1

REPORT INFORMATION
  Report Type: Spontaneous
  Country: US (occurrence: None)
  Receive Date: 20140114
  Receipt Date: 20140114
  Transmission Date: 20141002
  Serious: Yes (Hospitalization)
  Sender: FDA-Public Use
  Company Number: E2020-12281-SPO-US

PATIENT
  Age: 54 Year
  Sex: Female

DRUGS (10)
  1. ARICEPT (DONEPEZIL HYDROCHLORIDE) [Suspect]
     Indication: DEMENTIA ALZHEIMER^S TYPE
     Dosage: 5 MG, 1 IN 1 D, ORAL
     Route: 048
     Dates: end: 201304
  2. ARICEPT (DONEPEZIL HYDROCHLORIDE) [Suspect]
     Indication: TRISOMY 21
     Dosage: 5 MG, 1 IN 1 D, ORAL
     Route: 048
     Dates: end: 201304
  3. ASPIRIN (ACETYLSALICYLIC ACID) [Concomitant]
  4. PREDNISONE (PREDNISONE) [Concomitant]
  5. ARIMADEX (ANASTROZOLE) [Concomitant]
  6. SIMVASTATIN (SIMVASTATIN) [Concomitant]
  7. LOVEXOL (LEVOTHYROXINE SODIUM) [Concomitant]
  8. MULTIVITAMINS (MULTIVITAMINS) [Concomitant]
  9. LEVOTHYROXINE (LEVOTHYROXINE) [Concomitant]
  10. OMEPRAZOLE (OMEPRAZOLE) [Concomitant]

REACTIONS (6)
  - Syncope [None]
  - Dysarthria [None]
  - Disorientation [None]
  - Gait disturbance [None]
  - Presyncope [None]
  - Hallucination [None]
